FAERS Safety Report 4632110-8 (Version None)
Quarter: 2005Q2

REPORT INFORMATION
  Report Type: 
  Country: None (occurrence: None)
  Receive Date: 20050411
  Receipt Date: 20050331
  Transmission Date: 20051028
  Serious: Yes (Hospitalization)
  Sender: FDA-Public Use
  Company Number: US-AMGEN-US116546

PATIENT
  Sex: Female

DRUGS (6)
  1. AMG 099073 [Suspect]
     Indication: PARATHYROID TUMOUR MALIGNANT
     Route: 048
     Dates: start: 20030610
  2. DIGOXIN [Concomitant]
  3. IMDUR [Concomitant]
  4. SYNTHROID [Concomitant]
  5. EVISTA [Concomitant]
  6. COUMADIN [Concomitant]

REACTIONS (9)
  - ASTHENIA [None]
  - BLOOD CREATININE INCREASED [None]
  - DECREASED APPETITE [None]
  - DEHYDRATION [None]
  - ECCHYMOSIS [None]
  - FALL [None]
  - HEAD INJURY [None]
  - HYPERCALCAEMIA [None]
  - NAUSEA [None]
